FAERS Safety Report 21218840 (Version 1)
Quarter: 2022Q3

REPORT INFORMATION
  Report Type: Other
  Country: None (occurrence: US)
  Receive Date: 20220816
  Receipt Date: 20220816
  Transmission Date: 20221027
  Serious: Yes (Other)
  Sender: FDA-Public Use
  Company Number: US-Vi-Jon Inc.-2131938

PATIENT
  Age: 26 Year
  Sex: Female
  Weight: 105.91 kg

DRUGS (1)
  1. MAGNESIUM CITRATE LEMON [Suspect]
     Active Substance: MAGNESIUM CITRATE
     Route: 048
     Dates: start: 20220629, end: 20220719

REACTIONS (1)
  - Abdominal pain [Unknown]

NARRATIVE: CASE EVENT DATE: 20220629
